FAERS Safety Report 10790818 (Version 1)
Quarter: 2015Q1

REPORT INFORMATION
  Report Type: Spontaneous
  Country: US (occurrence: US)
  Receive Date: 20150212
  Receipt Date: 20150212
  Transmission Date: 20150721
  Serious: Yes (Death, Hospitalization)
  Sender: FDA-Public Use
  Company Number: US-PFIZER INC-2015053203

PATIENT
  Age: 80 Year
  Sex: Female
  Weight: 67 kg

DRUGS (1)
  1. TORISEL [Suspect]
     Active Substance: TEMSIROLIMUS
     Indication: NEOPLASM MALIGNANT
     Dosage: 25 MG, UNK
     Route: 042
     Dates: start: 20141029, end: 20141117

REACTIONS (3)
  - Disease progression [Fatal]
  - Neoplasm malignant [Fatal]
  - Quality of life decreased [Unknown]
